FAERS Safety Report 25720488 (Version 1)
Quarter: 2025Q3

REPORT INFORMATION
  Report Type: Spontaneous
  Country: JP (occurrence: JP)
  Receive Date: 20250825
  Receipt Date: 20250825
  Transmission Date: 20251020
  Serious: Yes (Other)
  Sender: STRIDES
  Company Number: JP-STRIDES ARCOLAB LIMITED-2025SP010784

PATIENT
  Age: 45 Year
  Sex: Male

DRUGS (2)
  1. CABERGOLINE [Suspect]
     Active Substance: CABERGOLINE
     Indication: Neuroendocrine tumour
     Route: 065
  2. CABERGOLINE [Suspect]
     Active Substance: CABERGOLINE
     Indication: Pituitary tumour

REACTIONS (2)
  - IIIrd nerve paralysis [Recovering/Resolving]
  - Neoplasm progression [Recovered/Resolved]
